FAERS Safety Report 4962428-0 (Version None)
Quarter: 2006Q1

REPORT INFORMATION
  Report Type: 
  Country: None (occurrence: None)
  Receive Date: 20060329
  Receipt Date: 20060316
  Transmission Date: 20060701
  Serious: Yes (Hospitalization, Other)
  Sender: FDA-Public Use
  Company Number: 2006AL000745

PATIENT
  Age: 83 Year
  Sex: Male

DRUGS (5)
  1. HYDROCHLOROTHIAZDE TAB [Suspect]
  2. OMEPRAZOLE [Suspect]
     Dosage: 20 MG; QD;
  3. CARVEDILOL [Concomitant]
  4. ASPIRIN [Concomitant]
  5. LISINOPRIL [Concomitant]

REACTIONS (8)
  - ANAEMIA [None]
  - BLOOD CREATINE INCREASED [None]
  - BLOOD GLUCOSE INCREASED [None]
  - BLOOD UREA INCREASED [None]
  - PANCREATIC PSEUDOCYST [None]
  - PANCREATITIS ACUTE [None]
  - PULMONARY CONGESTION [None]
  - RESPIRATORY DISTRESS [None]
